FAERS Safety Report 8450532-4 (Version None)
Quarter: 2012Q2

REPORT INFORMATION
  Report Type: 
  Country: None (occurrence: None)
  Receive Date: 20120614
  Receipt Date: 20120614
  Transmission Date: 20120825
  Serious: No
  Sender: FDA-Public Use
  Company Number: None

PATIENT

DRUGS (2)
  1. LYRICA [Suspect]
     Indication: HEADACHE
     Dosage: 50 MG TWICE A DAY PO  SINCE APRIL
     Route: 048
  2. LYRICA [Suspect]
     Indication: FIBROMYALGIA
     Dosage: 50 MG TWICE A DAY PO  SINCE APRIL
     Route: 048

REACTIONS (13)
  - RESTLESSNESS [None]
  - OEDEMA PERIPHERAL [None]
  - DRY MOUTH [None]
  - PALPITATIONS [None]
  - SWELLING FACE [None]
  - SUICIDAL IDEATION [None]
  - OFF LABEL USE [None]
  - FEELING JITTERY [None]
  - HEADACHE [None]
  - DIZZINESS [None]
  - SUICIDAL BEHAVIOUR [None]
  - DYSPNOEA [None]
  - VISION BLURRED [None]
